FAERS Safety Report 8062050-6 (Version None)
Quarter: 2012Q1

REPORT INFORMATION
  Report Type: 
  Country: None (occurrence: None)
  Receive Date: 20120123
  Receipt Date: 20120113
  Transmission Date: 20120608
  Serious: Yes (Hospitalization, Other)
  Sender: FDA-Public Use
  Company Number: GB-JNJFOC-20111111501

PATIENT
  Age: 21 Year
  Sex: Male

DRUGS (3)
  1. REMICADE [Suspect]
     Indication: COLITIS ULCERATIVE
     Dosage: HAD 5 INFUSIONS
     Route: 042
     Dates: start: 20110101, end: 20111101
  2. AZATHIOPRINE [Concomitant]
     Route: 065
  3. MESALAMINE [Concomitant]
     Route: 065

REACTIONS (2)
  - SYSTEMIC LUPUS ERYTHEMATOSUS [None]
  - PERICARDITIS [None]
